FAERS Safety Report 5568048-1 (Version None)
Quarter: 2007Q4

REPORT INFORMATION
  Report Type: 
  Country: None (occurrence: None)
  Receive Date: 20071218
  Receipt Date: 20071205
  Transmission Date: 20080405
  Serious: Yes (Other)
  Sender: FDA-Public Use
  Company Number: 07-002116

PATIENT
  Age: 28 Year
  Sex: Female
  Weight: 88.4 kg

DRUGS (2)
  1. FEMCON FE [Suspect]
     Indication: CONTRACEPTION
     Dosage: 0.4MG/35MCG, QD, ORAL
     Route: 048
     Dates: start: 20070901, end: 20070101
  2. OVCON 35 FE                          (NORETHINDRONE, ETHINYL ESTRADIOL [Concomitant]

REACTIONS (3)
  - ABORTION SPONTANEOUS [None]
  - DRUG INEFFECTIVE [None]
  - PREGNANCY ON ORAL CONTRACEPTIVE [None]
